FAERS Safety Report 4696237-7 (Version None)
Quarter: 2005Q2

REPORT INFORMATION
  Report Type: 
  Country: None (occurrence: None)
  Receive Date: 20050621
  Receipt Date: 20050617
  Transmission Date: 20051028
  Serious: Yes (Life-Threatening)
  Sender: FDA-Public Use
  Company Number: 2005CG01127

PATIENT
  Age: 50 Year
  Sex: Male

DRUGS (4)
  1. OMEPRAZOLE [Suspect]
     Route: 048
     Dates: start: 20050518
  2. CORTANCYL [Suspect]
     Route: 048
     Dates: start: 20050523
  3. NEORAL [Suspect]
     Indication: GLOMERULONEPHRITIS FOCAL
     Route: 048
     Dates: start: 20050518, end: 20050602
  4. LASILIX [Suspect]
     Route: 048
     Dates: start: 20050518

REACTIONS (2)
  - CONVULSION [None]
  - ENCEPHALOPATHY [None]
